FAERS Safety Report 15681933 (Version 2)
Quarter: 2018Q4

REPORT INFORMATION
  Report Type: Not Available
  Country: US (occurrence: US)
  Receive Date: 20181203
  Receipt Date: 20181211
  Transmission Date: 20190205
  Serious: No
  Sender: FDA-Public Use
  Company Number: US-NEUROCRINE BIOSCIENCES INC.-2018NBI03380

PATIENT
  Age: 66 Year
  Sex: Male

DRUGS (2)
  1. INGREZZA [Suspect]
     Active Substance: VALBENAZINE
     Indication: TARDIVE DYSKINESIA
     Route: 048
     Dates: start: 20181102, end: 20181109
  2. INGREZZA [Suspect]
     Active Substance: VALBENAZINE
     Route: 048
     Dates: start: 20181110, end: 20181127

REACTIONS (5)
  - Somnambulism [Unknown]
  - Somnolence [Unknown]
  - Hallucination [Unknown]
  - Nightmare [Unknown]
  - Gait disturbance [Unknown]

NARRATIVE: CASE EVENT DATE: 201811
